FAERS Safety Report 18504102 (Version 1)
Quarter: 2020Q4

REPORT INFORMATION
  Report Type: Spontaneous
  Country: DE (occurrence: DE)
  Receive Date: 20201113
  Receipt Date: 20201113
  Transmission Date: 20210114
  Serious: Yes (Other)
  Sender: FDA-Public Use
  Company Number: DE-009507513-2011DEU007487

PATIENT
  Age: 72 Year
  Sex: Female

DRUGS (7)
  1. PEMBROLIZUMAB. [Suspect]
     Active Substance: PEMBROLIZUMAB
     Indication: ADENOCARCINOMA
     Dosage: UNK
     Dates: start: 201811, end: 201911
  2. CARBOPLATIN. [Suspect]
     Active Substance: CARBOPLATIN
  3. PEMETREXED DISODIUM [Suspect]
     Active Substance: PEMETREXED DISODIUM
  4. BEVACIZUMAB. [Suspect]
     Active Substance: BEVACIZUMAB
     Indication: ADENOCARCINOMA
     Dosage: UNK UNK, CYCLICAL
     Dates: start: 202005, end: 202007
  5. NINTEDANIB [Suspect]
     Active Substance: NINTEDANIB
     Indication: ADENOCARCINOMA
     Dosage: UNK UNK, CYCLICAL
     Dates: start: 202007, end: 202009
  6. NIVOLUMAB [Suspect]
     Active Substance: NIVOLUMAB
     Indication: ADENOCARCINOMA
     Dosage: UNK
     Dates: start: 201912, end: 202003
  7. DOCETAXEL. [Suspect]
     Active Substance: DOCETAXEL
     Indication: ADENOCARCINOMA
     Dosage: UNK UNK, CYCLICAL
     Dates: start: 202007, end: 202009

REACTIONS (10)
  - Pyrexia [Recovering/Resolving]
  - Myalgia [Unknown]
  - Ageusia [Unknown]
  - Mucosal disorder [Unknown]
  - Diarrhoea [Unknown]
  - Rash [Unknown]
  - Pruritus [Unknown]
  - Neutropenia [Unknown]
  - Decreased appetite [Unknown]
  - Malignant neoplasm progression [Unknown]

NARRATIVE: CASE EVENT DATE: 2019
